FAERS Safety Report 6184586-5 (Version None)
Quarter: 2009Q2

REPORT INFORMATION
  Report Type: 
  Country: None (occurrence: None)
  Receive Date: 20090508
  Receipt Date: 20090504
  Transmission Date: 20091009
  Serious: Yes (Death, Hospitalization, Other)
  Sender: FDA-Public Use
  Company Number: PHHY2009BR16935

PATIENT
  Sex: Male

DRUGS (1)
  1. FORADIL / FOR 258A / CGP 25827 [Suspect]
     Indication: LUNG DISORDER
     Dosage: UNK

REACTIONS (3)
  - DYSPNOEA [None]
  - ENDOTRACHEAL INTUBATION [None]
  - LUNG DISORDER [None]
